FAERS Safety Report 7739484-X (Version None)
Quarter: 2011Q3

REPORT INFORMATION
  Report Type: 
  Country: None (occurrence: None)
  Receive Date: 20110909
  Receipt Date: 20110826
  Transmission Date: 20111222
  Serious: Yes (Hospitalization)
  Sender: FDA-Public Use
  Company Number: US-MYLANLABS-2011S1018213

PATIENT
  Age: 33 Year
  Sex: Male

DRUGS (5)
  1. ATRIPLA [Suspect]
     Indication: ANTIRETROVIRAL THERAPY
     Dosage: EFAVIRENZ 600MG, EMTRICITABINE 200MG, TENOFOVIR 300MG
     Route: 048
  2. AZITHROMYCIN [Concomitant]
     Indication: ANTIBIOTIC PROPHYLAXIS
     Dosage: 1200MG WEEKLY
     Route: 048
  3. ATOVAQUONE [Concomitant]
     Indication: ANTIFUNGAL PROPHYLAXIS
     Route: 065
  4. COTRIM [Suspect]
     Indication: ANTIFUNGAL PROPHYLAXIS
     Dosage: TRIMETHOPRIM/SULFAMETHOXAZOLE 160/800MG DAILY
     Route: 048
  5. FLUCONAZOLE [Suspect]
     Dosage: 100MG DAILY
     Route: 048

REACTIONS (4)
  - RHABDOMYOLYSIS [None]
  - HEPATIC ENZYME INCREASED [None]
  - RENAL FAILURE ACUTE [None]
  - PYREXIA [None]
